FAERS Safety Report 16687761 (Version 1)
Quarter: 2019Q3

REPORT INFORMATION
  Report Type: Spontaneous
  Country: JP (occurrence: JP)
  Receive Date: 20190809
  Receipt Date: 20190809
  Transmission Date: 20191004
  Serious: No
  Sender: FDA-Public Use
  Company Number: JP-BEH-2019105356

PATIENT
  Age: 88 Year
  Sex: Male

DRUGS (2)
  1. ALBUMINAR-25 [Suspect]
     Active Substance: ALBUMIN HUMAN
     Dosage: ONE VIAL, SINGLE
     Route: 042
     Dates: start: 20190729, end: 20190729
  2. GLUCOSE [Concomitant]
     Active Substance: DEXTROSE

REACTIONS (1)
  - Urticaria [Unknown]

NARRATIVE: CASE EVENT DATE: 20190729
